FAERS Safety Report 9856783 (Version 1)
Quarter: 2014Q1

REPORT INFORMATION
  Report Type: Spontaneous
  Country: CA (occurrence: CA)
  Receive Date: 20140130
  Receipt Date: 20140130
  Transmission Date: 20141002
  Serious: Yes (Other)
  Sender: FDA-Public Use
  Company Number: CA-ASTRAZENECA-2014SE06486

PATIENT
  Age: 36 Year
  Sex: Female

DRUGS (4)
  1. QUETIAPINE [Suspect]
     Dosage: GENERIC, 400 MG TO 1000 MG PER DAY
     Route: 065
     Dates: start: 201312, end: 20140121
  2. CARBAMAZEPINE [Suspect]
     Dosage: 100 MG TO 700 MG PER DAY
     Route: 065
     Dates: start: 201312, end: 20140121
  3. EFFEXOR [Suspect]
     Indication: GENERALISED ANXIETY DISORDER
     Dosage: 112.5 MG TO 300 MG PER DAY
     Route: 065
     Dates: start: 2009, end: 201312
  4. EFFEXOR [Suspect]
     Indication: GENERALISED ANXIETY DISORDER
     Dosage: TAPERING DOSE
     Route: 065
     Dates: end: 201401

REACTIONS (6)
  - Paraesthesia [Recovered/Resolved]
  - Thinking abnormal [Unknown]
  - Anxiety [Unknown]
  - Conversion disorder [Unknown]
  - Neutropenia [Not Recovered/Not Resolved]
  - Off label use [Unknown]
